FAERS Safety Report 8178989 (Version 4)
Quarter: 2014Q1

REPORT INFORMATION
  Report Type: Spontaneous
  Country: US (occurrence: US)
  Receive Date: 20111013
  Receipt Date: 20140227
  Transmission Date: 20141002
  Serious: Yes (Hospitalization, Other)
  Sender: FDA-Public Use
  Company Number: US-B.I. PHARMACEUTICALS,INC./RIDGEFIELD-2011-BP-23956BP

PATIENT
  Age: 79 Year
  Sex: Male
  Weight: 63.5 kg

DRUGS (11)
  1. PRADAXA [Suspect]
     Indication: ATRIAL FIBRILLATION
     Dosage: 300 MG
     Route: 048
     Dates: start: 20110720, end: 20110907
  2. CARVEDILOL [Suspect]
     Indication: CARDIAC DISORDER
     Dosage: 25 MG
     Route: 065
     Dates: start: 201108
  3. LOSARTAN [Concomitant]
     Indication: HYPERTENSION
     Dosage: 50 MG
     Route: 065
  4. ANAGRELIDE [Concomitant]
     Indication: PLATELET DISORDER
     Route: 065
  5. HCTZ/TRIAMTERENE [Concomitant]
     Indication: HYPERTENSION
     Route: 065
  6. SYNTHROID [Concomitant]
     Indication: HYPOTHYROIDISM
     Dosage: 0.075 MG
     Route: 065
  7. FUROSEMIDE [Concomitant]
     Route: 065
  8. PRO-AIR [Concomitant]
     Route: 065
  9. SPIRONOLACTONE [Concomitant]
     Route: 065
  10. ALBUTEROL [Concomitant]
     Dosage: 6 PUF
     Route: 065
  11. CALCIUM/VITAMIN D [Concomitant]
     Route: 065

REACTIONS (6)
  - Gastrointestinal haemorrhage [Unknown]
  - Anaemia [Unknown]
  - Asthenia [Recovered/Resolved]
  - Blood count abnormal [Recovered/Resolved]
  - Melaena [Recovered/Resolved]
  - Haemoptysis [Unknown]
